FAERS Safety Report 10214438 (Version 1)
Quarter: 2014Q2

REPORT INFORMATION
  Report Type: Spontaneous
  Country: CN (occurrence: CN)
  Receive Date: 20140603
  Receipt Date: 20140603
  Transmission Date: 20141212
  Serious: Yes (Hospitalization)
  Sender: FDA-Public Use
  Company Number: CN-ASTRAZENECA-2014SE37036

PATIENT
  Sex: Female
  Weight: 44 kg

DRUGS (8)
  1. BUDESONIDE FORMOTEROL [Suspect]
     Indication: ASTHMA
     Dosage: 160G/4.5G DAILY
     Route: 055
     Dates: start: 20130831, end: 20130831
  2. BUDESONIDE FORMOTEROL [Suspect]
     Indication: ASTHMA
     Dosage: 160G/4.5G DAILY
     Route: 055
     Dates: start: 20130831, end: 20130831
  3. BUDESONIDE [Suspect]
     Indication: INFLAMMATION
     Dosage: 1MG+0.9% NACL  IN THE FORM OF AEROSOL INHALATION DAILY
     Route: 055
     Dates: start: 20130901, end: 20130901
  4. BUDESONIDE [Suspect]
     Indication: RESPIRATORY DISORDER
     Dosage: 1MG+0.9% NACL  IN THE FORM OF AEROSOL INHALATION DAILY
     Route: 055
     Dates: start: 20130901, end: 20130901
  5. BUDESONIDE [Suspect]
     Indication: BRONCHOSPASM
     Dosage: 1MG+0.9% NACL  IN THE FORM OF AEROSOL INHALATION DAILY
     Route: 055
     Dates: start: 20130901, end: 20130901
  6. BUDESONIDE [Suspect]
     Indication: INFLAMMATION
     Dosage: 1MG+0.9% NACL  IN THE FORM OF AEROSOL INHALATION DAILY
     Route: 055
     Dates: start: 20130901, end: 20130901
  7. BUDESONIDE [Suspect]
     Indication: RESPIRATORY DISORDER
     Dosage: 1MG+0.9% NACL  IN THE FORM OF AEROSOL INHALATION DAILY
     Route: 055
     Dates: start: 20130901, end: 20130901
  8. BUDESONIDE [Suspect]
     Indication: BRONCHOSPASM
     Dosage: 1MG+0.9% NACL  IN THE FORM OF AEROSOL INHALATION DAILY
     Route: 055
     Dates: start: 20130901, end: 20130901

REACTIONS (6)
  - Hypoaesthesia [Recovering/Resolving]
  - Local swelling [Unknown]
  - Wheezing [Unknown]
  - Face oedema [Recovering/Resolving]
  - Pharyngeal oedema [Unknown]
  - Erythema [Recovering/Resolving]
